FAERS Safety Report 11448585 (Version 2)
Quarter: 2015Q4

REPORT INFORMATION
  Report Type: Spontaneous
  Country: US (occurrence: US)
  Receive Date: 20150902
  Receipt Date: 20151009
  Transmission Date: 20160304
  Serious: Yes (Other)
  Sender: FDA-Public Use
  Company Number: US-BAYER-2015-408488

PATIENT
  Age: 67 Year
  Sex: Female
  Weight: 90.7 kg

DRUGS (2)
  1. PREDNISONE. [Concomitant]
     Active Substance: PREDNISONE
  2. BAYER ADVANCED ASPIRIN EXTRA STRENGTH [Suspect]
     Active Substance: ASPIRIN
     Indication: HEADACHE
     Dosage: 2 DF, PRN
     Route: 048
     Dates: start: 201507, end: 20150823

REACTIONS (7)
  - Choking [Recovered/Resolved]
  - Retching [Recovered/Resolved]
  - Oropharyngeal pain [Recovering/Resolving]
  - Throat irritation [None]
  - Expired product administered [None]
  - Wrong technique in product usage process [None]
  - Eructation [None]

NARRATIVE: CASE EVENT DATE: 20150823
